FAERS Safety Report 10620182 (Version 1)
Quarter: 2014Q4

REPORT INFORMATION
  Report Type: Spontaneous
  Country: SE (occurrence: SE)
  Receive Date: 20141202
  Receipt Date: 20141202
  Transmission Date: 20150529
  Serious: Yes (Other)
  Sender: FDA-Public Use
  Company Number: SE-GE HEALTHCARE MEDICAL DIAGNOSTICS-OMPQ-PR-1411S-1513

PATIENT
  Age: 46 Year
  Sex: Female

DRUGS (2)
  1. OMNIPAQUE [Suspect]
     Active Substance: IOHEXOL
     Indication: PRODUCT USED FOR UNKNOWN INDICATION
     Route: 042
     Dates: start: 20141020, end: 20141020
  2. OMNIPAQUE [Suspect]
     Active Substance: IOHEXOL
     Indication: DIAGNOSTIC PROCEDURE

REACTIONS (5)
  - Vomiting [Unknown]
  - Hypoaesthesia [Unknown]
  - Nausea [Unknown]
  - Dyspnoea [Unknown]
  - Paraesthesia [Unknown]

NARRATIVE: CASE EVENT DATE: 20141020
